FAERS Safety Report 17260172 (Version 1)
Quarter: 2020Q1

REPORT INFORMATION
  Report Type: Spontaneous
  Country: US (occurrence: US)
  Receive Date: 20200111
  Receipt Date: 20200111
  Transmission Date: 20200409
  Serious: No
  Sender: FDA-Public Use
  Company Number: US-AMGEN-USASP2020002874

PATIENT

DRUGS (2)
  1. BLINATUMOMAB [Suspect]
     Active Substance: BLINATUMOMAB
     Indication: PRECURSOR B-LYMPHOBLASTIC LYMPHOMA
     Dosage: 9 MICROGRAM, QD FOR 1 WEEK
     Route: 042
  2. BLINATUMOMAB [Suspect]
     Active Substance: BLINATUMOMAB
     Dosage: 28 MICROGRAM, QD, OVER 4 WEEK
     Route: 042

REACTIONS (1)
  - Neurological symptom [Recovered/Resolved]
